FAERS Safety Report 24099717 (Version 1)
Quarter: 2024Q3

REPORT INFORMATION
  Report Type: Spontaneous
  Country: US (occurrence: US)
  Receive Date: 20240716
  Receipt Date: 20240716
  Transmission Date: 20241016
  Serious: No
  Sender: NOVO NORDISK
  Company Number: US-NOVOPROD-1216676

PATIENT
  Age: 18 Year

DRUGS (1)
  1. OZEMPIC [Suspect]
     Active Substance: SEMAGLUTIDE
     Indication: Type 2 diabetes mellitus
     Dosage: 10
     Route: 058
     Dates: start: 20240118

REACTIONS (5)
  - Anal haemorrhage [Not Recovered/Not Resolved]
  - Ear haemorrhage [Not Recovered/Not Resolved]
  - Skin abrasion [Not Recovered/Not Resolved]
  - Somnolence [Not Recovered/Not Resolved]
  - Homicidal ideation [Not Recovered/Not Resolved]

NARRATIVE: CASE EVENT DATE: 20240131
